FAERS Safety Report 7258164-0 (Version None)
Quarter: 2011Q1

REPORT INFORMATION
  Report Type: 
  Country: None (occurrence: None)
  Receive Date: 20110129
  Receipt Date: 20100714
  Transmission Date: 20110831
  Serious: Yes (Other)
  Sender: FDA-Public Use
  Company Number: US-ABBOTT-10P-163-0657757-00

PATIENT
  Sex: Female
  Weight: 69.462 kg

DRUGS (10)
  1. METHOTREXATE [Concomitant]
     Indication: RHEUMATOID ARTHRITIS
  2. FOLIC ACID [Concomitant]
  3. HUMIRA [Suspect]
     Indication: RHEUMATOID ARTHRITIS
     Route: 058
     Dates: start: 20000101
  4. CALCIUM [Concomitant]
     Indication: MINERAL SUPPLEMENTATION
     Dosage: 2- 600 MG TABLETS DAILY
  5. VITAMIN D [Concomitant]
     Indication: VITAMIN SUPPLEMENTATION
  6. FOSAMAX [Concomitant]
     Indication: OSTEOPOROSIS
  7. TYLENOL-500 [Concomitant]
     Indication: PAIN
     Dosage: 325MG X 1 TAB AS NEEDED
  8. FISH OIL [Concomitant]
     Indication: ANTICOAGULANT THERAPY
  9. EXFORGE [Concomitant]
     Indication: HYPERTENSION
     Dosage: 5-160 MG DAILY
  10. OMEPRAZOLE [Concomitant]
     Indication: GASTROOESOPHAGEAL REFLUX DISEASE

REACTIONS (4)
  - SKIN PAPILLOMA [None]
  - NEOPLASM MALIGNANT [None]
  - PAIN IN EXTREMITY [None]
  - PARAESTHESIA [None]
